FAERS Safety Report 12259227 (Version 1)
Quarter: 2016Q2

REPORT INFORMATION
  Report Type: Spontaneous
  Country: US (occurrence: US)
  Receive Date: 20160412
  Receipt Date: 20160412
  Transmission Date: 20160815
  Serious: No
  Sender: FDA-Public Use
  Company Number: US-SA-2015SA082955

PATIENT
  Age: 56 Year
  Sex: Female

DRUGS (1)
  1. ALLEGRA [Suspect]
     Active Substance: FEXOFENADINE HYDROCHLORIDE
     Indication: SEASONAL ALLERGY
     Dosage: PRODUCT START DATE: 4 DAYS AGO
     Route: 065
     Dates: end: 20150609

REACTIONS (1)
  - Oropharyngeal pain [Not Recovered/Not Resolved]
